FAERS Safety Report 9055471 (Version 1)
Quarter: 2013Q1

REPORT INFORMATION
  Report Type: Spontaneous
  Country: US (occurrence: US)
  Receive Date: 20130206
  Receipt Date: 20130206
  Transmission Date: 20140127
  Serious: No
  Sender: FDA-Public Use
  Company Number: US-ASTRAZENECA-2013SE07160

PATIENT
  Age: 71 Year
  Sex: Male
  Weight: 83.9 kg

DRUGS (9)
  1. CASODEX [Suspect]
     Indication: PROSTATE CANCER
     Route: 048
     Dates: start: 2003, end: 2006
  2. CASODEX [Suspect]
     Indication: PROSTATE CANCER
     Route: 048
  3. CASODEX [Suspect]
     Indication: PROSTATE CANCER
     Route: 048
     Dates: start: 201212
  4. LISINOPRIL [Suspect]
     Indication: HYPERTENSION
     Route: 048
     Dates: start: 20121231
  5. OMEPRAZOLE [Suspect]
     Indication: GASTROOESOPHAGEAL REFLUX DISEASE
     Route: 048
     Dates: end: 20130117
  6. LUPRON [Suspect]
     Route: 065
     Dates: start: 2003, end: 2006
  7. LUPRON [Suspect]
     Dosage: 45 MG 6-MONTH INJECTION
     Route: 065
     Dates: start: 201212
  8. ZOLPIDEM [Concomitant]
     Indication: SLEEP DISORDER
  9. PANTOPRAZOLE [Concomitant]
     Indication: GASTROOESOPHAGEAL REFLUX DISEASE

REACTIONS (6)
  - Insomnia [Unknown]
  - Malignant neoplasm progression [Unknown]
  - Poor quality sleep [Unknown]
  - Blood pressure abnormal [Unknown]
  - Gastrooesophageal reflux disease [Unknown]
  - Insomnia [Unknown]
